FAERS Safety Report 24910370 (Version 2)
Quarter: 2025Q1

REPORT INFORMATION
  Report Type: Report from Study
  Country: MX (occurrence: MX)
  Receive Date: 20250131
  Receipt Date: 20250210
  Transmission Date: 20250409
  Serious: Yes (Hospitalization, Disabling, Other)
  Sender: BAYER HEALTHCARE PHARMACEUTICALS INC.
  Company Number: MX-BAYER-2025A014432

PATIENT
  Age: 66 Year
  Sex: Male

DRUGS (5)
  1. XOFIGO [Suspect]
     Active Substance: RADIUM RA-223 DICHLORIDE
     Indication: Prostate cancer
     Dosage: 3.5 ML EVERY 30 DAYS
     Route: 042
     Dates: start: 20240722, end: 20240722
  2. XOFIGO [Suspect]
     Active Substance: RADIUM RA-223 DICHLORIDE
     Indication: Prostate cancer
     Dates: start: 20241211, end: 20241211
  3. CALCITRIOL [Concomitant]
     Active Substance: CALCITRIOL
  4. NIFEDIPINE [Concomitant]
     Active Substance: NIFEDIPINE
  5. GOSERELIN [Concomitant]
     Active Substance: GOSERELIN

REACTIONS (7)
  - Vision blurred [Not Recovered/Not Resolved]
  - Visual impairment [Not Recovered/Not Resolved]
  - Lacrimation increased [Not Recovered/Not Resolved]
  - Eye pain [Not Recovered/Not Resolved]
  - Eye swelling [Not Recovered/Not Resolved]
  - Headache [Not Recovered/Not Resolved]
  - Glaucoma surgery [None]

NARRATIVE: CASE EVENT DATE: 20250105
